FAERS Safety Report 21764056 (Version 1)
Quarter: 2022Q4

REPORT INFORMATION
  Report Type: Spontaneous
  Country: US (occurrence: US)
  Receive Date: 20221222
  Receipt Date: 20221222
  Transmission Date: 20230113
  Serious: No
  Sender: FDA-Public Use
  Company Number: US-ABBVIE-4245829

PATIENT
  Sex: Male

DRUGS (2)
  1. VENCLEXTA [Suspect]
     Active Substance: VENETOCLAX
     Indication: Myelodysplastic syndrome
     Dosage: TAKE 4 TABLET(S) BY MOUTH DAILY FOR 14 DAYS, FOLLOWED BY 14 DAYS REST
     Route: 048
  2. VENCLEXTA [Suspect]
     Active Substance: VENETOCLAX
     Indication: Myelodysplastic syndrome
     Dosage: THEN REPEAT EVERY 4 WEEK(S)
     Route: 048

REACTIONS (2)
  - Nasopharyngitis [Unknown]
  - Off label use [Unknown]
